FAERS Safety Report 15870608 (Version 3)
Quarter: 2022Q1

REPORT INFORMATION
  Report Type: Other
  Country: US (occurrence: US)
  Receive Date: 20190125
  Receipt Date: 20220123
  Transmission Date: 20220423
  Serious: Yes (Hospitalization, Other)
  Sender: FDA-Public Use
  Company Number: US-ACORDA-ACO_152414_2018

PATIENT
  Sex: Male

DRUGS (2)
  1. AMPYRA [Suspect]
     Active Substance: DALFAMPRIDINE
     Indication: Multiple sclerosis
     Dosage: 10 MG, Q 12 HRS
     Route: 048
     Dates: start: 20180419
  2. AMPYRA [Suspect]
     Active Substance: DALFAMPRIDINE
     Dosage: 10 MILLIGRAM, Q 12 HRS
     Route: 048

REACTIONS (13)
  - Cardiac operation [Unknown]
  - Atrial fibrillation [Not Recovered/Not Resolved]
  - Cholecystectomy [Unknown]
  - Hepatic steatosis [Unknown]
  - Otorrhoea [Unknown]
  - Rhinorrhoea [Unknown]
  - Sputum increased [Unknown]
  - Cough [Unknown]
  - Platelet count decreased [Not Recovered/Not Resolved]
  - Liver function test increased [Unknown]
  - Pain in jaw [Unknown]
  - Ear pain [Unknown]
  - Balance disorder [Not Recovered/Not Resolved]

NARRATIVE: CASE EVENT DATE: 20180101
